FAERS Safety Report 16578721 (Version 2)
Quarter: 2019Q4

REPORT INFORMATION
  Report Type: Report from Study
  Country: AT (occurrence: AT)
  Receive Date: 20190716
  Receipt Date: 20191125
  Transmission Date: 20200122
  Serious: Yes (Hospitalization)
  Sender: FDA-Public Use
  Company Number: AT-PFIZER INC-2019145544

PATIENT
  Age: 78 Year
  Sex: Female
  Weight: 54 kg

DRUGS (10)
  1. FOSINOPRIL [Concomitant]
     Active Substance: FOSINOPRIL
     Indication: HYPERTENSION
     Dosage: 20 MG, 1X/DAY
     Route: 048
  2. GABATAL [Concomitant]
     Indication: PAIN
     Dosage: 300 MG, 1X/DAY
     Route: 048
  3. OLEOVIT [RETINOL] [Concomitant]
     Indication: OSTEOPOROSIS
     Dosage: 30 GTT, WEEKLY
     Route: 048
  4. THROMBO ASS [Concomitant]
     Active Substance: ASPIRIN
     Indication: THROMBOSIS PROPHYLAXIS
     Dosage: 50 MG, 1X/DAY
     Route: 048
  5. OMEC [Concomitant]
     Active Substance: OMEPRAZOLE
     Indication: PROPHYLAXIS
     Dosage: 20 MG, 1X/DAY
     Route: 048
  6. AMPHO MORONAL [Concomitant]
     Active Substance: AMPHOTERICIN B
     Indication: INFECTION PROPHYLAXIS
     Dosage: 1 TBSP (TABLE SPOON), 4X/DAY
     Route: 048
     Dates: start: 201902
  7. ZOFRAN [Concomitant]
     Active Substance: ONDANSETRON HYDROCHLORIDE
     Indication: PROPHYLAXIS OF NAUSEA AND VOMITING
     Dosage: 8 MG, 1X/DAY
     Route: 048
     Dates: start: 20190327, end: 20190401
  8. GLASDEGIB [Suspect]
     Active Substance: GLASDEGIB
     Indication: ACUTE MYELOID LEUKAEMIA
     Dosage: ONCE DAILY CONTINUOUS
     Route: 048
     Dates: start: 20190227, end: 20190402
  9. GUTTALAX [Suspect]
     Active Substance: SODIUM PICOSULFATE
     Indication: CONSTIPATION
     Dosage: 10-20 DROPS, 1X/DAY
     Route: 048
  10. AZACITIDINE. [Suspect]
     Active Substance: AZACITIDINE
     Indication: ACUTE MYELOID LEUKAEMIA
     Dosage: 120MG, DAILY FOR 7 DAYS
     Route: 058
     Dates: start: 20190227

REACTIONS (4)
  - Infection [Recovered/Resolved]
  - Circulatory collapse [Recovered/Resolved]
  - Diarrhoea [Recovered/Resolved]
  - Renal failure [Recovered/Resolved]

NARRATIVE: CASE EVENT DATE: 20190401
